FAERS Safety Report 25819998 (Version 3)
Quarter: 2025Q4

REPORT INFORMATION
  Report Type: Report from Study
  Country: JP (occurrence: JP)
  Receive Date: 20250918
  Receipt Date: 20251107
  Transmission Date: 20260117
  Serious: Yes (Other)
  Sender: ABBVIE
  Company Number: JP-ABBVIE-6464114

PATIENT
  Age: 65 Year
  Sex: Female

DRUGS (2)
  1. VYALEV [Suspect]
     Active Substance: FOSCARBIDOPA\FOSLEVODOPA
     Indication: Parkinson^s disease
     Dosage: FIRST ADMIN DATE: SEP 2025?DOSE INCREASED
     Route: 058
  2. VYALEV [Suspect]
     Active Substance: FOSCARBIDOPA\FOSLEVODOPA
     Dosage: LAST ADMIN DATE: SEP 2025
     Route: 058
     Dates: start: 20250906

REACTIONS (7)
  - Seizure [Unknown]
  - Mobility decreased [Unknown]
  - Nausea [Unknown]
  - Infusion site reaction [Unknown]
  - On and off phenomenon [Unknown]
  - Malaise [Unknown]
  - Infusion site swelling [Unknown]

NARRATIVE: CASE EVENT DATE: 20250101
